FAERS Safety Report 8619145-5 (Version None)
Quarter: 2012Q3

REPORT INFORMATION
  Report Type: 
  Country: None (occurrence: None)
  Receive Date: 20120824
  Receipt Date: 20120821
  Transmission Date: 20120928
  Serious: Yes (Other)
  Sender: FDA-Public Use
  Company Number: PHHY2010CA22433

PATIENT
  Sex: Female

DRUGS (6)
  1. EXJADE [Suspect]
     Indication: CONGENITAL APLASTIC ANAEMIA
     Dosage: 2000 MG, UNK
     Route: 048
     Dates: start: 20070901
  2. ATENOLOL [Concomitant]
  3. EXJADE [Suspect]
     Dosage: 1250 MG, UNK
  4. EXJADE [Suspect]
     Dosage: 1000 MG, UNK
     Route: 048
  5. EXJADE [Suspect]
     Dosage: UNK UKN, UNK
  6. VENTOLIN [Concomitant]

REACTIONS (8)
  - HEPATIC CIRRHOSIS [None]
  - HAEMOSIDEROSIS [None]
  - CONFUSIONAL STATE [None]
  - DIZZINESS [None]
  - SERUM FERRITIN DECREASED [None]
  - HEPATIC STEATOSIS [None]
  - WEIGHT DECREASED [None]
  - HEART RATE DECREASED [None]
